FAERS Safety Report 8985779 (Version 1)
Quarter: 2012Q4

REPORT INFORMATION
  Report Type: 
  Country: BN (occurrence: BN)
  Receive Date: 20121226
  Receipt Date: 20121226
  Transmission Date: 20130627
  Serious: Yes (Other)
  Sender: FDA-Public Use
  Company Number: BN-009507513-1212BRN009189

PATIENT
  Sex: Female

DRUGS (1)
  1. ALENDRONATE SODIUM [Suspect]
     Indication: OSTEOPOROSIS POSTMENOPAUSAL
     Route: 048

REACTIONS (2)
  - Femur fracture [Recovering/Resolving]
  - Pathological fracture [Recovered/Resolved]
